FAERS Safety Report 6853699-4 (Version None)
Quarter: 2010Q3

REPORT INFORMATION
  Report Type: 
  Country: None (occurrence: None)
  Receive Date: 20100717
  Receipt Date: 20071218
  Transmission Date: 20110219
  Serious: No
  Sender: FDA-Public Use
  Company Number: US-PFIZER INC-2007106100

PATIENT
  Sex: Female
  Weight: 58.181 kg

DRUGS (4)
  1. CHANTIX [Suspect]
     Indication: SMOKING CESSATION THERAPY
     Dates: start: 20071122, end: 20071206
  2. AVAPRO [Concomitant]
     Dates: start: 20010101
  3. ATENOLOL [Concomitant]
     Indication: HYPERTENSION
     Dates: start: 20010101
  4. METHOTREXATE [Concomitant]
     Indication: ARTHRITIS
     Dates: start: 20030101

REACTIONS (4)
  - ABDOMINAL DISCOMFORT [None]
  - INSOMNIA [None]
  - IRRITABILITY [None]
  - NAUSEA [None]
